FAERS Safety Report 6381358-3 (Version None)
Quarter: 2009Q3

REPORT INFORMATION
  Report Type: 
  Country: None (occurrence: None)
  Receive Date: 20090924
  Receipt Date: 20090909
  Transmission Date: 20100115
  Serious: Yes (Other)
  Sender: FDA-Public Use
  Company Number: 2009SP021571

PATIENT
  Age: 8 Year
  Sex: Female
  Weight: 30 kg

DRUGS (3)
  1. CLARITIN [Suspect]
     Indication: DERMATITIS ATOPIC
     Dosage: 10 MG;ONCE;PO ; 10 MG;ONCE;PO
     Route: 048
     Dates: start: 20090730, end: 20090730
  2. CLARITIN [Suspect]
     Indication: DERMATITIS ATOPIC
     Dosage: 10 MG;ONCE;PO ; 10 MG;ONCE;PO
     Route: 048
     Dates: start: 20090814, end: 20090814
  3. MUCODYNE [Concomitant]

REACTIONS (4)
  - HYPERSENSITIVITY [None]
  - LARYNGEAL OEDEMA [None]
  - SOMNOLENCE [None]
  - TACHYPNOEA [None]
